FAERS Safety Report 6993801-7 (Version None)
Quarter: 2010Q3

REPORT INFORMATION
  Report Type: 
  Country: None (occurrence: None)
  Receive Date: 20100917
  Receipt Date: 20100625
  Transmission Date: 20110219
  Serious: No
  Sender: FDA-Public Use
  Company Number: US-ASTRAZENECA-2010SE29914

PATIENT
  Age: 83 Year
  Sex: Male
  Weight: 90.7 kg

DRUGS (3)
  1. SEROQUEL XR [Suspect]
     Indication: MAJOR DEPRESSION
     Route: 048
     Dates: start: 20100615
  2. LORAZEPAM [Concomitant]
     Indication: ANXIETY
     Route: 048
  3. LEXAPRO [Concomitant]
     Indication: DEPRESSION
     Route: 048

REACTIONS (2)
  - DRUG INEFFECTIVE [None]
  - POOR QUALITY SLEEP [None]
